FAERS Safety Report 8377192 (Version 2)
Quarter: 2013Q1

REPORT INFORMATION
  Report Type: Report from Study
  Country: US (occurrence: US)
  Receive Date: 20120128
  Receipt Date: 20130131
  Transmission Date: 20140127
  Serious: Yes (Other)
  Sender: FDA-Public Use
  Company Number: US-ABBOTT-11P-163-0835398-00

PATIENT
  Age: 25 Year
  Sex: Female

DRUGS (7)
  1. HUMIRA 40 MG/ 0.8 ML PRE-FILLED SYRINGE [Suspect]
     Indication: PSORIATIC ARTHROPATHY
     Dates: start: 200811
  2. HUMIRA 40 MG/ 0.8 ML PRE-FILLED SYRINGE [Suspect]
     Indication: PSORIASIS
     Dates: start: 201102
  3. HUMIRA 40 MG/ 0.8 ML PRE-FILLED SYRINGE [Suspect]
     Dates: end: 201011
  4. HUMIRA 40 MG/ 0.8 ML PRE-FILLED SYRINGE [Suspect]
  5. LEVOXYL [Concomitant]
     Indication: THYROID DISORDER
  6. CYMBALTA [Concomitant]
     Indication: ANXIETY
  7. LOESTRIN FE [Concomitant]
     Indication: CONTRACEPTION
     Dosage: 24 - 1 TABLET DAILY

REACTIONS (2)
  - Cervical conisation [Unknown]
  - Psoriatic arthropathy [Unknown]
